FAERS Safety Report 19438962 (Version 5)
Quarter: 2021Q3

REPORT INFORMATION
  Report Type: Spontaneous
  Country: US (occurrence: US)
  Receive Date: 20210618
  Receipt Date: 20210802
  Transmission Date: 20211014
  Serious: Yes (Hospitalization, Other)
  Sender: FDA-Public Use
  Company Number: US-PFIZER INC-2021670688

PATIENT
  Age: 71 Year
  Sex: Female

DRUGS (1)
  1. PREMARIN [Suspect]
     Active Substance: ESTROGENS, CONJUGATED
     Dosage: 0.45 MG

REACTIONS (9)
  - Myocardial infarction [Unknown]
  - Muscle spasms [Unknown]
  - Weight decreased [Unknown]
  - Decreased appetite [Unknown]
  - Pain [Unknown]
  - Intervertebral disc protrusion [Unknown]
  - Herpes zoster [Unknown]
  - Arthralgia [Unknown]
  - Atrial fibrillation [Unknown]
